FAERS Safety Report 20226049 (Version 1)
Quarter: 2021Q4

REPORT INFORMATION
  Report Type: Spontaneous
  Country: GB (occurrence: GB)
  Receive Date: 20211224
  Receipt Date: 20211224
  Transmission Date: 20220303
  Serious: Yes (Other)
  Sender: FDA-Public Use
  Company Number: None

PATIENT
  Sex: Female

DRUGS (2)
  1. PREGABALIN [Suspect]
     Active Substance: PREGABALIN
     Route: 065
     Dates: start: 20210701
  2. CODEINE [Concomitant]
     Active Substance: CODEINE

REACTIONS (2)
  - Numb chin syndrome [Unknown]
  - Dry mouth [Unknown]
